FAERS Safety Report 8941555 (Version 2)
Quarter: 2012Q4

REPORT INFORMATION
  Report Type: 
  Country: JP (occurrence: JP)
  Receive Date: 20121203
  Receipt Date: 20121211
  Transmission Date: 20130627
  Serious: Yes (Other)
  Sender: FDA-Public Use
  Company Number: JP-ASTELLAS-2012US011642

PATIENT
  Age: 68 Year
  Sex: Male
  Weight: 61 kg

DRUGS (11)
  1. PROGRAF [Suspect]
     Indication: RHEUMATOID ARTHRITIS
     Dosage: 3 mg, UID/QD
     Route: 065
     Dates: start: 20091229
  2. GOLIMUMAB [Suspect]
     Indication: RHEUMATOID ARTHRITIS
     Dosage: 50 mg, Q4W
     Route: 058
     Dates: start: 20111216
  3. GOLIMUMAB [Suspect]
     Dosage: 50 mg, Q4W
     Route: 058
     Dates: start: 20120113
  4. GOLIMUMAB [Suspect]
     Dosage: 50 mg, Q4W
     Route: 058
     Dates: start: 20120210
  5. GOLIMUMAB [Suspect]
     Dosage: 50 mg, Q4W
     Route: 058
     Dates: start: 20120309
  6. GOLIMUMAB [Suspect]
     Dosage: 100 mg, Q4W
     Route: 058
     Dates: start: 20120406
  7. GOLIMUMAB [Suspect]
     Dosage: 100 mg, Q4W
     Route: 058
     Dates: start: 20120502
  8. GOLIMUMAB [Suspect]
     Dosage: 100 mg, Q4W
     Route: 058
     Dates: start: 20120601
  9. GOLIMUMAB [Suspect]
     Dosage: 100 mg, Q4W
     Route: 058
     Dates: start: 20120629
  10. UNISIA [Concomitant]
     Indication: PRODUCT USED FOR UNKNOWN INDICATION
     Dosage: UNK
     Route: 048
  11. NATRIX [Concomitant]
     Indication: PRODUCT USED FOR UNKNOWN INDICATION
     Dosage: UNK
     Route: 048

REACTIONS (6)
  - Off label use [Unknown]
  - Bone hyperpigmentation [Recovering/Resolving]
  - Renal function test abnormal [Unknown]
  - Post procedural infection [Unknown]
  - Alanine aminotransferase abnormal [Not Recovered/Not Resolved]
  - Aspartate aminotransferase abnormal [Not Recovered/Not Resolved]
